FAERS Safety Report 10357371 (Version 2)
Quarter: 2014Q3

REPORT INFORMATION
  Report Type: Spontaneous
  Country: JP (occurrence: JP)
  Receive Date: 20140801
  Receipt Date: 20140821
  Transmission Date: 20150326
  Serious: Yes (Life-Threatening, Hospitalization)
  Sender: FDA-Public Use
  Company Number: JP-PFIZER INC-2014211383

PATIENT

DRUGS (2)
  1. RYTHMODAN [Suspect]
     Active Substance: DISOPYRAMIDE
     Indication: ARRHYTHMIA
  2. ZYVOX [Suspect]
     Active Substance: LINEZOLID
     Indication: STAPHYLOCOCCAL INFECTION
     Dosage: 1200 MG, DAILY
     Route: 048
     Dates: start: 20140603, end: 20140725

REACTIONS (1)
  - Electrocardiogram QT prolonged [Recovered/Resolved]
